FAERS Safety Report 7999591-3 (Version None)
Quarter: 2011Q4

REPORT INFORMATION
  Report Type: 
  Country: None (occurrence: None)
  Receive Date: 20111221
  Receipt Date: 20111212
  Transmission Date: 20120403
  Serious: Yes (Hospitalization, Other)
  Sender: FDA-Public Use
  Company Number: US-MERCK-1107USA01643

PATIENT
  Age: 68 Year
  Sex: Female
  Weight: 68 kg

DRUGS (3)
  1. ARICEPT [Suspect]
     Indication: MEMORY IMPAIRMENT
     Route: 065
  2. FOSAMAX [Suspect]
     Indication: OSTEOPOROSIS
     Route: 048
     Dates: start: 20011201, end: 20110701
  3. ACTONEL [Suspect]
     Indication: OSTEOPOROSIS
     Route: 065
     Dates: start: 20110701

REACTIONS (41)
  - CHRONIC LYMPHOCYTIC LEUKAEMIA [None]
  - HAEMATURIA [None]
  - FOLLICULITIS [None]
  - HYPERTENSION [None]
  - LOW TURNOVER OSTEOPATHY [None]
  - VERTIGO POSITIONAL [None]
  - ADVERSE DRUG REACTION [None]
  - RHINITIS [None]
  - CONSTIPATION [None]
  - OSTEOARTHRITIS [None]
  - HEADACHE [None]
  - ECZEMA [None]
  - UPPER RESPIRATORY TRACT INFECTION [None]
  - OSTEOPENIA [None]
  - B-CELL SMALL LYMPHOCYTIC LYMPHOMA [None]
  - ALOPECIA [None]
  - EUSTACHIAN TUBE DYSFUNCTION [None]
  - DIVERTICULITIS [None]
  - DEMENTIA [None]
  - BREAST DISORDER [None]
  - CERUMEN IMPACTION [None]
  - STRESS FRACTURE [None]
  - COLONIC POLYP [None]
  - WHITE BLOOD CELL COUNT INCREASED [None]
  - URGE INCONTINENCE [None]
  - HORDEOLUM [None]
  - SLEEP DISORDER [None]
  - RASH PRURITIC [None]
  - HYPERLIPIDAEMIA [None]
  - CONJUNCTIVITIS [None]
  - ASTHMA [None]
  - DISTURBANCE IN ATTENTION [None]
  - URINARY TRACT INFECTION [None]
  - MEMORY IMPAIRMENT [None]
  - CYST [None]
  - FEMUR FRACTURE [None]
  - CEREBROVASCULAR ACCIDENT [None]
  - ATRIOVENTRICULAR BLOCK FIRST DEGREE [None]
  - HYPERGLYCAEMIA [None]
  - GASTROINTESTINAL DISORDER [None]
  - CEREBRAL ISCHAEMIA [None]
